FAERS Safety Report 19546561 (Version 1)
Quarter: 2021Q3

REPORT INFORMATION
  Report Type: Report from Study
  Country: US (occurrence: US)
  Receive Date: 20210715
  Receipt Date: 20210715
  Transmission Date: 20211014
  Serious: No
  Sender: FDA-Public Use
  Company Number: US-BIOVITRUM-DOV-000892

PATIENT
  Sex: Female

DRUGS (2)
  1. DOPTELET [Suspect]
     Active Substance: AVATROMBOPAG MALEATE
     Indication: IMMUNE THROMBOCYTOPENIA
     Dosage: 20 MILLIGRAM, QD
     Route: 048
     Dates: start: 20210204
  2. DOPTELET [Suspect]
     Active Substance: AVATROMBOPAG MALEATE
     Dosage: 40 MILLIGRAM, QD, (PM)
     Route: 048
     Dates: start: 20210204

REACTIONS (7)
  - Electrocardiogram abnormal [Unknown]
  - Product dose omission in error [Unknown]
  - Throat irritation [Unknown]
  - Platelet count decreased [Unknown]
  - Headache [Unknown]
  - Fatigue [Unknown]
  - Platelet count abnormal [Unknown]
